FAERS Safety Report 5400117-9 (Version None)
Quarter: 2007Q3

REPORT INFORMATION
  Report Type: 
  Country: None (occurrence: None)
  Receive Date: 20070725
  Receipt Date: 20070712
  Transmission Date: 20080115
  Serious: Yes (Death, Hospitalization)
  Sender: FDA-Public Use
  Company Number: 2007SP005852

PATIENT
  Age: 74 Year
  Sex: Male

DRUGS (23)
  1. NOXAFIL [Suspect]
     Indication: HEPATOSPLENIC CANDIDIASIS
     Dosage: 10 ML; Q12H
     Dates: start: 20070310, end: 20070319
  2. CARDURAN NEO (CON.) [Concomitant]
  3. URBAL (CON.) [Concomitant]
  4. AMCHAFIBRIN (CON.) [Concomitant]
  5. APROVEL (CON.) [Concomitant]
  6. SEGURIL (CON.) [Concomitant]
  7. VITAMIN K (CON.) [Concomitant]
  8. DUPHALAC (CON.) [Concomitant]
  9. ALDACTONE (CON.) [Concomitant]
  10. FINASTERIDE (CON.) [Concomitant]
  11. TARGOCID (CON.) [Concomitant]
  12. ZYLORIC (CON.) [Concomitant]
  13. FLUIDASA (CON.) [Concomitant]
  14. ALBUMIN (CON.) [Concomitant]
  15. FOLIC ACID (CON.) [Concomitant]
  16. DANATROL (PREV.) [Concomitant]
  17. PROSCAR (PREV.) [Concomitant]
  18. CARDURAN NEO (PREV.) [Concomitant]
  19. DILUTOL (PREV.) [Concomitant]
  20. ACOVIL (PREV.) [Concomitant]
  21. ZYLORIC (PREV.) [Concomitant]
  22. VORICONAZOLE (CON.) [Concomitant]
  23. CASPOFUNGIN (CON.) [Concomitant]

REACTIONS (6)
  - DRUG INEFFECTIVE [None]
  - DRUG INTERACTION [None]
  - GENERAL PHYSICAL HEALTH DETERIORATION [None]
  - NASOPHARYNGITIS [None]
  - PSEUDOMONAS INFECTION [None]
  - SEPTIC SHOCK [None]
